APPROVED DRUG PRODUCT: CABTREO
Active Ingredient: ADAPALENE; BENZOYL PEROXIDE; CLINDAMYCIN PHOSPHATE
Strength: 0.15%;3.1%;1.2%
Dosage Form/Route: GEL;TOPICAL
Application: N216632 | Product #001
Applicant: BAUSCH HEALTH US LLC
Approved: Oct 20, 2023 | RLD: Yes | RS: Yes | Type: RX

PATENTS:
Patent 11389467 | Expires: Dec 28, 2040
Patent 10624918 | Expires: Jun 3, 2029
Patent 10220049 | Expires: Jun 3, 2029
Patent 9561208 | Expires: Jun 3, 2029
Patent 8288434 | Expires: Aug 5, 2029
Patent 12128059 | Expires: Jul 31, 2040
Patent 12138278 | Expires: Jul 31, 2040
Patent 12133859 | Expires: Jul 31, 2040

EXCLUSIVITY:
Code: NP | Date: Oct 20, 2026